FAERS Safety Report 6895251-0 (Version None)
Quarter: 2010Q3

REPORT INFORMATION
  Report Type: 
  Country: None (occurrence: None)
  Receive Date: 20100802
  Receipt Date: 20100722
  Transmission Date: 20110219
  Serious: Yes (Hospitalization, Other)
  Sender: FDA-Public Use
  Company Number: CA-JNJFOC-20100707382

PATIENT
  Age: 64 Year
  Sex: Male
  Weight: 96 kg

DRUGS (15)
  1. REMICADE [Suspect]
     Indication: RHEUMATOID ARTHRITIS
     Route: 042
  2. REMICADE [Suspect]
     Route: 042
  3. CALCIUM [Concomitant]
     Indication: MEDICAL DIET
     Route: 048
  4. ACIDE FOLIQUE [Concomitant]
     Indication: PROPHYLAXIS
     Route: 048
  5. METHOTREXATE [Concomitant]
     Indication: RHEUMATOID ARTHRITIS
     Route: 058
  6. ADALAT CC [Concomitant]
     Indication: BLOOD PRESSURE
     Route: 048
  7. ASPIRIN [Concomitant]
     Indication: TACHYCARDIA
     Route: 048
  8. REACTINE [Concomitant]
     Indication: URTICARIA CHRONIC
     Route: 048
  9. ALENDRONATE SODIUM [Concomitant]
     Indication: OSTEOPOROSIS PROPHYLAXIS
     Route: 048
  10. CRESTOR [Concomitant]
     Indication: BLOOD CHOLESTEROL
     Route: 048
  11. PANTOPRAZOLE [Concomitant]
     Indication: DYSPEPSIA
     Route: 048
  12. PREDNISONE [Concomitant]
     Indication: RHEUMATOID ARTHRITIS
     Route: 048
  13. PREDNISONE [Concomitant]
     Route: 048
  14. PREDNISONE [Concomitant]
     Route: 048
  15. METOPROLOL [Concomitant]
     Indication: TACHYCARDIA
     Route: 048

REACTIONS (2)
  - LUNG NEOPLASM [None]
  - MEDIASTINAL MASS [None]
